FAERS Safety Report 4473754-6 (Version None)
Quarter: 2004Q3

REPORT INFORMATION
  Report Type: 
  Country: None (occurrence: None)
  Receive Date: 20040917
  Receipt Date: 20040713
  Transmission Date: 20050211
  Serious: Yes (Other)
  Sender: FDA-Public Use
  Company Number: US-JNJFOC-20040603841

PATIENT
  Age: 21 Year
  Sex: Female
  Weight: 74.3899 kg

DRUGS (5)
  1. ORTHO EVRA [Suspect]
     Indication: CONTRACEPTION
     Dosage: 1 DOSE(S), 3 IN 4 WEEK, TRANSDERMAL
     Route: 062
     Dates: start: 20020601, end: 20040611
  2. INSULIN HUMULEN (INSULIN INJECTION, ISOPHANE) [Concomitant]
  3. REGLAN [Concomitant]
  4. NEURONTIN [Concomitant]
  5. ULTRACET [Concomitant]

REACTIONS (7)
  - ABORTION SPONTANEOUS [None]
  - AFFECT LABILITY [None]
  - BLOOD GLUCOSE INCREASED [None]
  - DRUG EXPOSURE DURING PREGNANCY [None]
  - MENSTRUAL DISORDER [None]
  - MYALGIA [None]
  - UNINTENDED PREGNANCY [None]
